FAERS Safety Report 4714995-X (Version None)
Quarter: 2005Q3

REPORT INFORMATION
  Report Type: 
  Country: None (occurrence: None)
  Receive Date: 20050713
  Receipt Date: 20050628
  Transmission Date: 20060218
  Serious: Yes (Hospitalization)
  Sender: FDA-Public Use
  Company Number: 2005-DE-02490GD

PATIENT
  Age: 18 Month
  Sex: Male
  Weight: 11 kg

DRUGS (3)
  1. HYDROCORTISONE [Suspect]
     Indication: ASTHMA
     Dosage: 450 MG (NR), NR
  2. ALBUTEROL SULFATE HFA [Suspect]
     Indication: WHEEZING
     Dosage: IH
     Route: 055
  3. AMINOPHYLLIN [Suspect]
     Indication: ASTHMA
     Dosage: 375 MG (NR), NR

REACTIONS (12)
  - ABDOMINAL DISTENSION [None]
  - BLOOD CHLORIDE DECREASED [None]
  - BOWEL SOUNDS ABNORMAL [None]
  - HYPERAMYLASAEMIA [None]
  - IRRITABILITY [None]
  - NAUSEA [None]
  - PYREXIA [None]
  - TACHYCARDIA [None]
  - TACHYPNOEA [None]
  - THERAPEUTIC AGENT TOXICITY [None]
  - VOMITING [None]
  - WHEEZING [None]
